FAERS Safety Report 6468266-4 (Version None)
Quarter: 2009Q4

REPORT INFORMATION
  Report Type: 
  Country: None (occurrence: None)
  Receive Date: 20091119
  Receipt Date: 20090728
  Transmission Date: 20100525
  Serious: No
  Sender: FDA-Public Use
  Company Number: WAES 0907USA05022

PATIENT
  Age: 64 Year
  Sex: Female

DRUGS (15)
  1. JANUVIA [Suspect]
     Indication: DIABETES MELLITUS
     Dosage: DAILY/PO
     Route: 048
     Dates: start: 20080701
  2. ACTONEL [Concomitant]
  3. ALDARA [Concomitant]
  4. ALLEGRA [Concomitant]
  5. AMARYL [Concomitant]
  6. GENGRAF [Concomitant]
  7. LIPITOR [Concomitant]
  8. NEXIUM [Concomitant]
  9. ZETIA [Concomitant]
  10. ATENOLOL [Concomitant]
  11. CALCITRIOL [Concomitant]
  12. LEVOTHYROXINE SODIUM [Concomitant]
  13. LISINOPRIL [Concomitant]
  14. PREDNISONE [Concomitant]
  15. VITAMINS (UNSPECIFIED) [Concomitant]

REACTIONS (7)
  - BLOOD GLUCOSE DECREASED [None]
  - COUGH [None]
  - DIZZINESS [None]
  - FRACTURE [None]
  - NAUSEA [None]
  - RHINORRHOEA [None]
  - WRONG TECHNIQUE IN DRUG USAGE PROCESS [None]
